FAERS Safety Report 25167449 (Version 1)
Quarter: 2025Q2

REPORT INFORMATION
  Report Type: Spontaneous
  Country: US (occurrence: None)
  Receive Date: 20250404
  Receipt Date: 20250404
  Transmission Date: 20250716
  Serious: No
  Sender: FDA-CTU
  Company Number: None

PATIENT
  Sex: Female

DRUGS (1)
  1. MIEBO [Suspect]
     Active Substance: PERFLUOROHEXYLOCTANE
     Dosage: FREQUENCY : 3 TIMES A DAY;?
     Route: 047

REACTIONS (3)
  - Instillation site irritation [None]
  - Eyelid irritation [None]
  - Eye movement disorder [None]
